FAERS Safety Report 21269423 (Version 1)
Quarter: 2022Q3

REPORT INFORMATION
  Report Type: Report from Study
  Country: IT (occurrence: IT)
  Receive Date: 20220830
  Receipt Date: 20220830
  Transmission Date: 20221027
  Serious: Yes (Other)
  Sender: FDA-Public Use
  Company Number: IT-ASTELLAS-2022US030311

PATIENT
  Sex: Female

DRUGS (3)
  1. GILTERITINIB [Suspect]
     Active Substance: GILTERITINIB
     Indication: Acute myeloid leukaemia
     Route: 048
  2. GILTERITINIB [Suspect]
     Active Substance: GILTERITINIB
     Dosage: UNK UNK, UNKNOWN FREQ. (DECREASED DOSE)
     Route: 048
  3. GILTERITINIB [Suspect]
     Active Substance: GILTERITINIB
     Route: 048

REACTIONS (3)
  - Pneumonia klebsiella [Unknown]
  - Neutropenia [Unknown]
  - Electrocardiogram QT prolonged [Recovered/Resolved]
